FAERS Safety Report 5056169-1 (Version None)
Quarter: 2006Q3

REPORT INFORMATION
  Report Type: 
  Country: None (occurrence: None)
  Receive Date: 20060717
  Receipt Date: 20060710
  Transmission Date: 20061208
  Serious: Yes (Hospitalization)
  Sender: FDA-Public Use
  Company Number: 2006P1000265

PATIENT
  Age: 64 Year
  Sex: Male

DRUGS (14)
  1. RETEPLASE (RETEPLASE) [Suspect]
     Indication: ACUTE MYOCARDIAL INFARCTION
     Dosage: IV
     Route: 042
     Dates: start: 20050921, end: 20050921
  2. REOPRO [Suspect]
     Indication: ACUTE MYOCARDIAL INFARCTION
     Dosage: IV
     Dates: start: 20050921
  3. FENOTEROL [Concomitant]
  4. SIMVASTATIN [Concomitant]
  5. POTASSIUM CHLORIDE [Concomitant]
  6. VERAPAMIL [Concomitant]
  7. INDAPAMIDE [Concomitant]
  8. ASPIRIN [Concomitant]
  9. TICLOPIDINE [Concomitant]
  10. FLUTICASONE PROPIONATE [Concomitant]
  11. FORMOTEROL FUMARATE [Concomitant]
  12. RANITIDINE [Concomitant]
  13. ISOSORBIDE MONONITRATE [Concomitant]
  14. ENALAPRIL MALEATE [Concomitant]

REACTIONS (1)
  - BRONCHITIS [None]
